FAERS Safety Report 6911860-4 (Version None)
Quarter: 2010Q3

REPORT INFORMATION
  Report Type: 
  Country: None (occurrence: None)
  Receive Date: 20100806
  Receipt Date: 20070717
  Transmission Date: 20110219
  Serious: No
  Sender: FDA-Public Use
  Company Number: US-PFIZER INC-2007058186

PATIENT
  Sex: Male

DRUGS (3)
  1. VFEND [Suspect]
     Route: 042
     Dates: start: 20070611
  2. VFEND [Suspect]
     Route: 048
  3. SEPTRA [Suspect]

REACTIONS (1)
  - URINARY TRACT DISORDER [None]
